FAERS Safety Report 22345467 (Version 2)
Quarter: 2023Q2

REPORT INFORMATION
  Report Type: Spontaneous
  Country: US (occurrence: US)
  Receive Date: 20230519
  Receipt Date: 20230615
  Transmission Date: 20230722
  Serious: No
  Sender: FDA-Public Use
  Company Number: US-JNJFOC-20230540882

PATIENT
  Sex: Female

DRUGS (1)
  1. OPSUMIT [Suspect]
     Active Substance: MACITENTAN
     Indication: Product used for unknown indication
     Route: 048

REACTIONS (4)
  - Gastrooesophageal reflux disease [Recovered/Resolved]
  - Hiatus hernia [Unknown]
  - Weight decreased [Unknown]
  - Blood pressure decreased [Unknown]
